FAERS Safety Report 9925710 (Version 2)
Quarter: 2014Q1

REPORT INFORMATION
  Report Type: Spontaneous
  Country: NL (occurrence: NL)
  Receive Date: 20140226
  Receipt Date: 20140226
  Transmission Date: 20141002
  Serious: Yes (Death)
  Sender: FDA-Public Use
  Company Number: NL-BAXTER-2014BAX007103

PATIENT
  Age: 86 Year
  Sex: Male

DRUGS (3)
  1. EXTRANEAL [Suspect]
     Indication: PERITONEAL DIALYSIS
     Route: 033
     Dates: end: 20140209
  2. PHYSIONEAL 40 GLUCOSE 2.27% W/V / 22.7 MG/ML CLEAR-FLEX, OPLOSSING VOO [Suspect]
     Indication: PERITONEAL DIALYSIS
     Route: 033
     Dates: end: 20140209
  3. PHYSIONEAL 40 GLUCOSE 3,86% W/V / 38,6 MG/ML CLEAR-FLEX, OPLOSSING VOO [Suspect]
     Indication: PERITONEAL DIALYSIS
     Route: 033
     Dates: end: 20140209

REACTIONS (1)
  - Death [Fatal]
